FAERS Safety Report 11547718 (Version 1)
Quarter: 2015Q3

REPORT INFORMATION
  Report Type: Spontaneous
  Country: PE (occurrence: PE)
  Receive Date: 20150924
  Receipt Date: 20150924
  Transmission Date: 20151125
  Serious: Yes (Hospitalization, Other)
  Sender: FDA-Public Use
  Company Number: PE-009507513-1509PER011935

PATIENT
  Age: 71 Year
  Sex: Male

DRUGS (1)
  1. RINELON 50 MCG/DOSES NASAL SPRAY SUSPENSION [Suspect]
     Active Substance: MOMETASONE FUROATE
     Dosage: 2 APPLICATIONS PER DAY
     Route: 055
     Dates: start: 20150410

REACTIONS (1)
  - Prostatic operation [Unknown]

NARRATIVE: CASE EVENT DATE: 20150916
